FAERS Safety Report 17111774 (Version 3)
Quarter: 2020Q1

REPORT INFORMATION
  Report Type: Spontaneous
  Country: JP (occurrence: JP)
  Receive Date: 20191204
  Receipt Date: 20200222
  Transmission Date: 20200409
  Serious: Yes (Death, Life-Threatening, Other)
  Sender: FDA-Public Use
  Company Number: JP-009507513-1910JPN000420J

PATIENT
  Age: 70 Year
  Sex: Male
  Weight: 71 kg

DRUGS (8)
  1. SILECE [Concomitant]
     Active Substance: FLUNITRAZEPAM
     Indication: NAUSEA
     Dosage: 1.4 MILLIGRAM, QD
     Route: 042
     Dates: start: 20190717, end: 20191002
  2. LANTUS [Concomitant]
     Active Substance: INSULIN GLARGINE
     Indication: DIABETES MELLITUS
     Dosage: UNK
     Route: 058
     Dates: end: 20191110
  3. SERENACE [Concomitant]
     Active Substance: HALOPERIDOL
     Indication: NAUSEA
     Dosage: 5 MILLIGRAM, QD
     Route: 042
     Dates: start: 20190717, end: 20191111
  4. DARBEPOETIN ALFA(GENETICAL RECOMBINATION) [Concomitant]
     Indication: NEPHROGENIC ANAEMIA
     Dosage: 40 MICROGRAM
     Route: 058
     Dates: start: 20190830, end: 20191011
  5. KEYTRUDA [Suspect]
     Active Substance: PEMBROLIZUMAB
     Indication: TRANSITIONAL CELL CARCINOMA
     Dosage: 200 MILLIGRAM, TWICE EVERT 3 WEEKS
     Route: 041
     Dates: start: 20190816, end: 20190908
  6. OXIFAST [Concomitant]
     Active Substance: OXYCODONE
     Indication: CANCER PAIN
     Dosage: 0.15 MILLILITER, QD
     Route: 058
     Dates: start: 20190816, end: 20191112
  7. APIDRA [Concomitant]
     Active Substance: INSULIN GLULISINE
     Indication: DIABETES MELLITUS
     Dosage: UNK
     Route: 058
     Dates: end: 20191015
  8. SILECE [Concomitant]
     Active Substance: FLUNITRAZEPAM
     Indication: RESTLESSNESS

REACTIONS (5)
  - Delirium [Unknown]
  - Malignant neoplasm progression [Fatal]
  - Gynaecomastia [Unknown]
  - Off label use [Unknown]
  - Interstitial lung disease [Recovered/Resolved]

NARRATIVE: CASE EVENT DATE: 2019
